FAERS Safety Report 15227236 (Version 1)
Quarter: 2018Q3

REPORT INFORMATION
  Report Type: Report from Study
  Country: CA (occurrence: CA)
  Receive Date: 20180801
  Receipt Date: 20180801
  Transmission Date: 20181010
  Serious: Yes (Hospitalization, Other)
  Sender: FDA-Public Use
  Company Number: CA-ELI_LILLY_AND_COMPANY-CA201707000771

PATIENT
  Age: 73 Year
  Sex: Female

DRUGS (2)
  1. TERIPARATIDE [Suspect]
     Active Substance: TERIPARATIDE
     Indication: OSTEOPOROSIS
     Dosage: 20 UG, DAILY
     Route: 058
     Dates: start: 20170403, end: 20170528
  2. TERIPARATIDE [Suspect]
     Active Substance: TERIPARATIDE
     Dosage: 20 UG, DAILY
     Route: 058
     Dates: start: 20170624

REACTIONS (3)
  - Fall [Not Recovered/Not Resolved]
  - Anaemia [Not Recovered/Not Resolved]
  - Tibia fracture [Not Recovered/Not Resolved]

NARRATIVE: CASE EVENT DATE: 201705
